FAERS Safety Report 25570527 (Version 1)
Quarter: 2025Q3

REPORT INFORMATION
  Report Type: Report from Study
  Country: US (occurrence: US)
  Receive Date: 20250717
  Receipt Date: 20250717
  Transmission Date: 20251020
  Serious: No
  Sender: JOHNSON AND JOHNSON
  Company Number: US-JNJFOC-20250716462

PATIENT

DRUGS (8)
  1. TALVEY [Suspect]
     Active Substance: TALQUETAMAB-TGVS
     Indication: Product used for unknown indication
  2. TALVEY [Suspect]
     Active Substance: TALQUETAMAB-TGVS
  3. TALVEY [Suspect]
     Active Substance: TALQUETAMAB-TGVS
  4. TALVEY [Suspect]
     Active Substance: TALQUETAMAB-TGVS
  5. TECVAYLI [Suspect]
     Active Substance: TECLISTAMAB-CQYV
     Indication: Product used for unknown indication
  6. TECVAYLI [Suspect]
     Active Substance: TECLISTAMAB-CQYV
  7. TECVAYLI [Suspect]
     Active Substance: TECLISTAMAB-CQYV
  8. TECVAYLI [Suspect]
     Active Substance: TECLISTAMAB-CQYV

REACTIONS (1)
  - Inappropriate schedule of product administration [Unknown]
